FAERS Safety Report 4859779-7 (Version None)
Quarter: 2005Q4

REPORT INFORMATION
  Report Type: 
  Country: None (occurrence: None)
  Receive Date: 20051215
  Receipt Date: 20051205
  Transmission Date: 20060501
  Serious: Yes (Hospitalization, Other)
  Sender: FDA-Public Use
  Company Number: CHPA2003US02250

PATIENT
  Age: 47 Year
  Sex: Female
  Weight: 78 kg

DRUGS (15)
  1. EX-LAX LAXATIVE (NCH) [Suspect]
     Dates: start: 19930101
  2. CORRECTOL [Suspect]
     Dates: start: 19930101
  3. ANALGESIC (NO INGREDIENTS/SUBSTANCES) [Suspect]
     Indication: POSTOPERATIVE ANALGESIA
  4. IBUPROFEN [Concomitant]
  5. PREVPAC [Concomitant]
  6. FLEXERIL [Concomitant]
  7. VIOXX [Concomitant]
  8. DARVOCET-N 100 [Concomitant]
  9. DAYPRO [Concomitant]
  10. MONOPRIL (FOSINOPRL SODIUM) [Concomitant]
  11. DARVON (DEXTROPRPOXYPHENE HYDROCHLORIDE) [Concomitant]
  12. GOLYTELY (MACROGOL, POTASSIUM CHLORIDE, SODIUM BICARBONATE, SODIUM CHL [Concomitant]
  13. DEMADEX [Concomitant]
  14. LASIX (FUROSEMIDE, FUROSEMIDE SODIUM) [Concomitant]
  15. COLACE (DOCUSATE SODIUM) [Concomitant]

REACTIONS (21)
  - ABDOMINAL HAEMATOMA [None]
  - ABDOMINAL PAIN UPPER [None]
  - BLOOD PRESSURE INCREASED [None]
  - CHOLECYSTITIS [None]
  - CONSTIPATION [None]
  - DECREASED APPETITE [None]
  - DRUG DEPENDENCE [None]
  - ECONOMIC PROBLEM [None]
  - EMOTIONAL DISORDER [None]
  - ENDOMETRIOSIS [None]
  - FAECALOMA [None]
  - HELICOBACTER PYLORI IDENTIFICATION TEST POSITIVE [None]
  - ILEUS [None]
  - INJURY [None]
  - INTESTINAL OBSTRUCTION [None]
  - NAUSEA [None]
  - OVARIAN CYST [None]
  - PELVIC PAIN [None]
  - PEPTIC ULCER [None]
  - RECTAL HAEMORRHAGE [None]
  - VOMITING [None]
